FAERS Safety Report 21582406 (Version 4)
Quarter: 2025Q1

REPORT INFORMATION
  Report Type: Spontaneous
  Country: US (occurrence: US)
  Receive Date: 20221111
  Receipt Date: 20250213
  Transmission Date: 20250409
  Serious: No
  Sender: PFIZER
  Company Number: US-PFIZER INC-PV202200101653

PATIENT
  Age: 63 Year
  Sex: Female
  Weight: 84.354 kg

DRUGS (1)
  1. XELJANZ XR [Suspect]
     Active Substance: TOFACITINIB CITRATE
     Dosage: 11 MG, DAILY

REACTIONS (5)
  - Blood creatinine increased [Unknown]
  - Weight abnormal [Unknown]
  - Alanine aminotransferase increased [Unknown]
  - Back pain [Unknown]
  - Myalgia [Unknown]
